FAERS Safety Report 15589034 (Version 1)
Quarter: 2018Q4

REPORT INFORMATION
  Report Type: Other
  Country: IT (occurrence: IT)
  Receive Date: 20181106
  Receipt Date: 20181106
  Transmission Date: 20190205
  Serious: Yes (Life-Threatening, Other)
  Sender: FDA-Public Use
  Company Number: IT-MACLEODS PHARMACEUTICALS US LTD-MAC2018018485

PATIENT

DRUGS (1)
  1. PANTOPRAZOLE TABLET [Suspect]
     Active Substance: PANTOPRAZOLE
     Indication: GASTRITIS
     Dosage: 20 MILLIGRAM, S.O.S.
     Route: 048

REACTIONS (3)
  - Rash [Recovering/Resolving]
  - Dyspnoea [Recovering/Resolving]
  - Anaphylactic shock [Recovering/Resolving]

NARRATIVE: CASE EVENT DATE: 20181023
